FAERS Safety Report 7677242-5 (Version None)
Quarter: 2011Q3

REPORT INFORMATION
  Report Type: 
  Country: None (occurrence: None)
  Receive Date: 20110811
  Receipt Date: 20110809
  Transmission Date: 20111222
  Serious: Yes (Hospitalization)
  Sender: FDA-Public Use
  Company Number: ES-PFIZER INC-2006112084

PATIENT
  Age: 45 Year
  Sex: Male

DRUGS (3)
  1. EPOETIN BETA [Concomitant]
     Route: 030
     Dates: start: 20060622
  2. SUNITINIB MALATE [Suspect]
     Indication: METASTATIC RENAL CELL CARCINOMA
     Dosage: 50 MG, 1X/DAY
     Route: 048
     Dates: start: 20060511, end: 20060914
  3. SUNITINIB MALATE [Suspect]
     Dosage: UNK
     Route: 048
     Dates: start: 20060922, end: 20061213

REACTIONS (2)
  - HAEMATURIA [None]
  - URINARY RETENTION [None]
